FAERS Safety Report 17797447 (Version 6)
Quarter: 2020Q3

REPORT INFORMATION
  Report Type: Spontaneous
  Country: US (occurrence: US)
  Receive Date: 20200518
  Receipt Date: 20200824
  Transmission Date: 20201102
  Serious: Yes (Hospitalization)
  Sender: FDA-Public Use
  Company Number: US-SA-2020SA124514

PATIENT

DRUGS (60)
  1. TRESIBA [Concomitant]
     Active Substance: INSULIN DEGLUDEC
     Dosage: 200 U, QD
     Route: 058
  2. WARFARIN [Concomitant]
     Active Substance: WARFARIN
     Dosage: 1 DF; FREQUENCY: ON SUNDAY, TUESDAY
     Route: 048
  3. ROSUVASTATIN. [Concomitant]
     Active Substance: ROSUVASTATIN
     Dosage: 1 DF, QD
     Route: 048
  4. ALBUTEROL [SALBUTAMOL SULFATE] [Concomitant]
     Active Substance: ALBUTEROL SULFATE
     Dosage: 3 ML FREQUENCY: Q2H, PRN
     Route: 055
  5. HYDROCORTISONE. [Concomitant]
     Active Substance: HYDROCORTISONE
     Dosage: UNK, TID, 1 APPLICATION
     Route: 061
  6. MEDROXYPROGESTERONE [Concomitant]
     Active Substance: MEDROXYPROGESTERONE
     Dosage: 1 DF, QD
     Route: 048
  7. DUPIXENT [Suspect]
     Active Substance: DUPILUMAB
     Indication: ILLNESS
     Dosage: 300 MG, QOW
     Route: 058
     Dates: start: 20200521
  8. CYCLOBENZAPRINE. [Concomitant]
     Active Substance: CYCLOBENZAPRINE
     Indication: ARTHRALGIA
     Dosage: 1 DF; FREQUENCY: BEDTIME AS NEEDED
     Route: 048
  9. PREDNISONE. [Concomitant]
     Active Substance: PREDNISONE
     Dosage: 3 DF, QD
     Route: 048
  10. PREDNISONE. [Concomitant]
     Active Substance: PREDNISONE
     Dosage: 40 MG, QD
     Route: 048
  11. CEFDINIR. [Concomitant]
     Active Substance: CEFDINIR
     Dosage: 6 ML, BID
     Route: 048
  12. PROCHLORPERAZINE. [Concomitant]
     Active Substance: PROCHLORPERAZINE
     Indication: VOMITING
  13. TIROSINT [Concomitant]
     Active Substance: LEVOTHYROXINE SODIUM
     Dosage: 1 DF, QD
     Route: 048
  14. HUMALOG [Concomitant]
     Active Substance: INSULIN LISPRO
     Dosage: 4 U
     Route: 058
  15. TRESIBA [Concomitant]
     Active Substance: INSULIN DEGLUDEC
     Dosage: 160 U, QD
     Route: 058
  16. DIFLUCAN [Concomitant]
     Active Substance: FLUCONAZOLE
     Dosage: 1 DF, QD
     Route: 048
  17. AZITHROMYCIN ANHYDROUS. [Concomitant]
     Active Substance: AZITHROMYCIN ANHYDROUS
     Dosage: 1 DF, QD
     Route: 048
  18. FARXIGA [Concomitant]
     Active Substance: DAPAGLIFLOZIN PROPANEDIOL
     Dosage: 1 DF, QD
     Route: 048
  19. CETRIZINE [Concomitant]
     Active Substance: CETIRIZINE HYDROCHLORIDE
     Dosage: UNK
  20. LOVENOX [Concomitant]
     Active Substance: ENOXAPARIN SODIUM
     Dosage: 1 ML, QD
     Route: 058
  21. TIROSINT [Concomitant]
     Active Substance: LEVOTHYROXINE SODIUM
     Dosage: 4 DF, QD
     Route: 048
  22. ALBUTEROL [SALBUTAMOL SULFATE] [Concomitant]
     Active Substance: ALBUTEROL SULFATE
     Indication: DYSPNOEA
     Dosage: 3 ML, TID
     Route: 065
  23. MAGNESIUM OXIDE. [Concomitant]
     Active Substance: MAGNESIUM OXIDE
     Dosage: 1 DF, BID
     Route: 048
  24. WARFARIN [Concomitant]
     Active Substance: WARFARIN
     Dosage: 1 DF, QW; EVERY THURSDAY, SATURDAY
     Route: 048
  25. PREDNISONE. [Concomitant]
     Active Substance: PREDNISONE
     Dosage: UNK, TAPER AS DIRECTED
     Route: 048
  26. BUDESONIDE. [Concomitant]
     Active Substance: BUDESONIDE
     Dosage: 2 ML, BID
     Route: 065
  27. LEVOTHYROXINE. [Concomitant]
     Active Substance: LEVOTHYROXINE
     Dosage: 1 DF, QD
     Route: 048
  28. AZELASTINE. [Concomitant]
     Active Substance: AZELASTINE HYDROCHLORIDE
     Dosage: 2 DF, BID
     Route: 045
  29. FLUTICASONE. [Concomitant]
     Active Substance: FLUTICASONE
     Dosage: 1 DF, BID
     Route: 045
  30. VITAMINS NOS [Concomitant]
     Active Substance: VITAMINS
     Dosage: 1 DF, BID
  31. TIZANIDINE. [Concomitant]
     Active Substance: TIZANIDINE
     Dosage: 1 DF; FRWQUENCY AT BEDTIME AS NEEEDED
     Route: 048
  32. WARFARIN [Concomitant]
     Active Substance: WARFARIN
     Dosage: 3 MG; FREQUENCY: ALL OTHER DAYS
     Route: 048
  33. NYSTATIN. [Concomitant]
     Active Substance: NYSTATIN
     Dosage: UNK, BID, 1 APPLICATION
     Route: 061
  34. TYLENOL WITH CODEINE [Concomitant]
     Active Substance: ACETAMINOPHEN\CODEINE PHOSPHATE
     Indication: COUGH
     Dosage: 1 DF, FREQUENCY QID, PRN
     Route: 048
  35. WARFARIN [Concomitant]
     Active Substance: WARFARIN
     Dosage: 3 MG,3 MG; FREQUENCY: ALL OTHER DAYS
     Route: 048
  36. PREDNISONE. [Concomitant]
     Active Substance: PREDNISONE
     Dosage: 5 MG, Q5D
     Route: 048
  37. PREDNISONE. [Concomitant]
     Active Substance: PREDNISONE
     Dosage: 5 DF, QD
     Route: 048
  38. PANTOPRAZOLE [Concomitant]
     Active Substance: PANTOPRAZOLE
     Dosage: 1 DF, QD
     Route: 048
  39. CEFDINIR. [Concomitant]
     Active Substance: CEFDINIR
     Dosage: 1 DF, Q12H
     Route: 048
  40. MUCINEX [Concomitant]
     Active Substance: GUAIFENESIN
     Dosage: 1 DF, Q12H
     Route: 048
  41. ERGOCALCIFEROL. [Concomitant]
     Active Substance: ERGOCALCIFEROL
     Dosage: 1 DF
     Route: 048
  42. DUPIXENT [Suspect]
     Active Substance: DUPILUMAB
     Indication: ASTHMA
     Dosage: 600 MG, 1X
     Route: 058
     Dates: start: 20200501, end: 20200501
  43. PREDNISONE. [Concomitant]
     Active Substance: PREDNISONE
     Dosage: 10 MG, QD
     Route: 048
  44. PROCHLORPERAZINE. [Concomitant]
     Active Substance: PROCHLORPERAZINE
     Indication: NAUSEA
     Dosage: 1 DF, BID, PRN
     Route: 048
  45. HUMALOG [Concomitant]
     Active Substance: INSULIN LISPRO
     Dosage: UNK, TID;TDD 30 UNITS
  46. HUMULIN R [Concomitant]
     Active Substance: INSULIN HUMAN
     Dosage: UNK, SLIDING SCLAE UPTO 600 UNITS/DAILY
     Route: 058
  47. CETIRIZINE [Concomitant]
     Active Substance: CETIRIZINE HYDROCHLORIDE
     Dosage: 1 DF, QD
     Route: 048
  48. LASIX [Concomitant]
     Active Substance: FUROSEMIDE
     Dosage: 1 DF, QD
     Route: 048
  49. WARFARIN [Concomitant]
     Active Substance: WARFARIN
     Dosage: 2 DF; EVERY TUESDAY, SUNDAY
     Route: 048
  50. BENADRYL [Concomitant]
     Active Substance: DIPHENHYDRAMINE HYDROCHLORIDE
     Indication: HYPERSENSITIVITY
     Dosage: 1 DF, FREQUENCY: BEDTIME, PR
     Route: 048
  51. PANTOPRAZOLE [Concomitant]
     Active Substance: PANTOPRAZOLE
     Dosage: 2 DF, QD
     Route: 048
  52. ADVAIR HFA [Concomitant]
     Active Substance: FLUTICASONE PROPIONATE\SALMETEROL XINAFOATE
     Dosage: 1 DF, BID
     Route: 055
  53. ZITHROMAX [Concomitant]
     Active Substance: AZITHROMYCIN DIHYDRATE
     Dosage: UNK
     Route: 065
  54. BENADRYL [Concomitant]
     Active Substance: DIPHENHYDRAMINE HYDROCHLORIDE
     Dosage: UNK
     Route: 048
  55. DUONEB [Concomitant]
     Active Substance: ALBUTEROL SULFATE\IPRATROPIUM BROMIDE
     Dosage: 3 ML, QID
     Route: 055
  56. OZEMPIC [Concomitant]
     Active Substance: SEMAGLUTIDE
     Dosage: 1 MG, QW, EVERY TUESDAY
     Route: 058
  57. METFORMIN [Concomitant]
     Active Substance: METFORMIN HYDROCHLORIDE
     Dosage: 1000 MG, BID
     Route: 048
  58. SINGULAIR [Concomitant]
     Active Substance: MONTELUKAST SODIUM
     Dosage: 1 DF, HS
     Route: 048
  59. PROAIR HFA [Concomitant]
     Active Substance: ALBUTEROL SULFATE
     Indication: WHEEZING
     Dosage: 2 DF, FREQUENCY:Q4H PRN
     Route: 055
  60. PREDNISONE. [Concomitant]
     Active Substance: PREDNISONE
     Dosage: 4 DF, QD
     Route: 048

REACTIONS (7)
  - Nausea [Recovered/Resolved]
  - Dyspnoea [Unknown]
  - Dizziness [Unknown]
  - Vomiting [Recovered/Resolved]
  - Hyperglycaemia [Unknown]
  - Product use in unapproved indication [Unknown]
  - Respiratory disorder [Unknown]

NARRATIVE: CASE EVENT DATE: 2020
